FAERS Safety Report 25304571 (Version 1)
Quarter: 2025Q2

REPORT INFORMATION
  Report Type: Spontaneous
  Country: FR (occurrence: FR)
  Receive Date: 20250513
  Receipt Date: 20250513
  Transmission Date: 20250717
  Serious: Yes (Hospitalization)
  Sender: MYLAN
  Company Number: None

PATIENT
  Age: 78 Year
  Sex: Male
  Weight: 78 kg

DRUGS (64)
  1. ETOPOSIDE [Suspect]
     Active Substance: ETOPOSIDE
     Indication: Diffuse large B-cell lymphoma
  2. ETOPOSIDE [Suspect]
     Active Substance: ETOPOSIDE
     Route: 042
  3. ETOPOSIDE [Suspect]
     Active Substance: ETOPOSIDE
     Route: 042
  4. ETOPOSIDE [Suspect]
     Active Substance: ETOPOSIDE
  5. OXALIPLATIN [Suspect]
     Active Substance: OXALIPLATIN
     Indication: Diffuse large B-cell lymphoma
  6. OXALIPLATIN [Suspect]
     Active Substance: OXALIPLATIN
     Route: 065
  7. OXALIPLATIN [Suspect]
     Active Substance: OXALIPLATIN
     Route: 065
  8. OXALIPLATIN [Suspect]
     Active Substance: OXALIPLATIN
  9. YESCARTA [Suspect]
     Active Substance: AXICABTAGENE CILOLEUCEL
     Indication: Diffuse large B-cell lymphoma
  10. YESCARTA [Suspect]
     Active Substance: AXICABTAGENE CILOLEUCEL
     Route: 042
  11. YESCARTA [Suspect]
     Active Substance: AXICABTAGENE CILOLEUCEL
     Route: 042
  12. YESCARTA [Suspect]
     Active Substance: AXICABTAGENE CILOLEUCEL
  13. RITUXIMAB [Suspect]
     Active Substance: RITUXIMAB
     Indication: Diffuse large B-cell lymphoma
  14. RITUXIMAB [Suspect]
     Active Substance: RITUXIMAB
     Route: 042
  15. RITUXIMAB [Suspect]
     Active Substance: RITUXIMAB
     Route: 042
  16. RITUXIMAB [Suspect]
     Active Substance: RITUXIMAB
  17. CYCLOPHOSPHAMIDE [Suspect]
     Active Substance: CYCLOPHOSPHAMIDE
     Indication: Diffuse large B-cell lymphoma
  18. CYCLOPHOSPHAMIDE [Suspect]
     Active Substance: CYCLOPHOSPHAMIDE
     Route: 042
  19. CYCLOPHOSPHAMIDE [Suspect]
     Active Substance: CYCLOPHOSPHAMIDE
     Route: 042
  20. CYCLOPHOSPHAMIDE [Suspect]
     Active Substance: CYCLOPHOSPHAMIDE
  21. DOXORUBICIN [Suspect]
     Active Substance: DOXORUBICIN
     Indication: Diffuse large B-cell lymphoma
  22. DOXORUBICIN [Suspect]
     Active Substance: DOXORUBICIN
     Route: 042
  23. DOXORUBICIN [Suspect]
     Active Substance: DOXORUBICIN
     Route: 042
  24. DOXORUBICIN [Suspect]
     Active Substance: DOXORUBICIN
  25. VINCRISTINE SULFATE [Suspect]
     Active Substance: VINCRISTINE SULFATE
     Indication: Diffuse large B-cell lymphoma
  26. VINCRISTINE SULFATE [Suspect]
     Active Substance: VINCRISTINE SULFATE
     Route: 042
  27. VINCRISTINE SULFATE [Suspect]
     Active Substance: VINCRISTINE SULFATE
     Route: 042
  28. VINCRISTINE SULFATE [Suspect]
     Active Substance: VINCRISTINE SULFATE
  29. IFOSFAMIDE [Suspect]
     Active Substance: IFOSFAMIDE
     Indication: Diffuse large B-cell lymphoma
  30. IFOSFAMIDE [Suspect]
     Active Substance: IFOSFAMIDE
     Route: 042
  31. IFOSFAMIDE [Suspect]
     Active Substance: IFOSFAMIDE
     Route: 042
  32. IFOSFAMIDE [Suspect]
     Active Substance: IFOSFAMIDE
  33. CYTARABINE [Suspect]
     Active Substance: CYTARABINE
     Indication: Diffuse large B-cell lymphoma
  34. CYTARABINE [Suspect]
     Active Substance: CYTARABINE
     Route: 042
  35. CYTARABINE [Suspect]
     Active Substance: CYTARABINE
     Route: 042
  36. CYTARABINE [Suspect]
     Active Substance: CYTARABINE
  37. GABAPENTIN [Concomitant]
     Active Substance: GABAPENTIN
  38. GABAPENTIN [Concomitant]
     Active Substance: GABAPENTIN
     Route: 065
  39. GABAPENTIN [Concomitant]
     Active Substance: GABAPENTIN
     Route: 065
  40. GABAPENTIN [Concomitant]
     Active Substance: GABAPENTIN
  41. AMITRIPTYLINE [Concomitant]
     Active Substance: AMITRIPTYLINE
  42. AMITRIPTYLINE [Concomitant]
     Active Substance: AMITRIPTYLINE
     Route: 065
  43. AMITRIPTYLINE [Concomitant]
     Active Substance: AMITRIPTYLINE
     Route: 065
  44. AMITRIPTYLINE [Concomitant]
     Active Substance: AMITRIPTYLINE
  45. IRBESARTAN [Concomitant]
     Active Substance: IRBESARTAN
  46. IRBESARTAN [Concomitant]
     Active Substance: IRBESARTAN
     Route: 065
  47. IRBESARTAN [Concomitant]
     Active Substance: IRBESARTAN
     Route: 065
  48. IRBESARTAN [Concomitant]
     Active Substance: IRBESARTAN
  49. TAMSULOSIN HYDROCHLORIDE [Concomitant]
     Active Substance: TAMSULOSIN HYDROCHLORIDE
  50. TAMSULOSIN HYDROCHLORIDE [Concomitant]
     Active Substance: TAMSULOSIN HYDROCHLORIDE
     Route: 065
  51. TAMSULOSIN HYDROCHLORIDE [Concomitant]
     Active Substance: TAMSULOSIN HYDROCHLORIDE
     Route: 065
  52. TAMSULOSIN HYDROCHLORIDE [Concomitant]
     Active Substance: TAMSULOSIN HYDROCHLORIDE
  53. PANTOPRAZOLE [Concomitant]
     Active Substance: PANTOPRAZOLE
  54. PANTOPRAZOLE [Concomitant]
     Active Substance: PANTOPRAZOLE
     Route: 065
  55. PANTOPRAZOLE [Concomitant]
     Active Substance: PANTOPRAZOLE
     Route: 065
  56. PANTOPRAZOLE [Concomitant]
     Active Substance: PANTOPRAZOLE
  57. ATOVAQUONE [Concomitant]
     Active Substance: ATOVAQUONE
  58. ATOVAQUONE [Concomitant]
     Active Substance: ATOVAQUONE
     Route: 065
  59. ATOVAQUONE [Concomitant]
     Active Substance: ATOVAQUONE
     Route: 065
  60. ATOVAQUONE [Concomitant]
     Active Substance: ATOVAQUONE
  61. VALACYCLOVIR HYDROCHLORIDE [Concomitant]
     Active Substance: VALACYCLOVIR HYDROCHLORIDE
  62. VALACYCLOVIR HYDROCHLORIDE [Concomitant]
     Active Substance: VALACYCLOVIR HYDROCHLORIDE
     Route: 065
  63. VALACYCLOVIR HYDROCHLORIDE [Concomitant]
     Active Substance: VALACYCLOVIR HYDROCHLORIDE
     Route: 065
  64. VALACYCLOVIR HYDROCHLORIDE [Concomitant]
     Active Substance: VALACYCLOVIR HYDROCHLORIDE

REACTIONS (1)
  - Myelodysplastic syndrome with multilineage dysplasia [Not Recovered/Not Resolved]

NARRATIVE: CASE EVENT DATE: 20250401
